FAERS Safety Report 6615263-1 (Version None)
Quarter: 2010Q1

REPORT INFORMATION
  Report Type: 
  Country: None (occurrence: None)
  Receive Date: 20100305
  Receipt Date: 20090423
  Transmission Date: 20100710
  Serious: Yes (Other)
  Sender: FDA-Public Use
  Company Number: PHHY2008CA30383

PATIENT
  Sex: Male

DRUGS (12)
  1. SANDOSTATIN LAR [Suspect]
     Indication: ADENOMA BENIGN
     Dosage: 20 MG, QMO
     Dates: start: 20080808
  2. SANDOSTATIN [Suspect]
     Indication: ADENOMA BENIGN
     Dosage: UNK
     Route: 030
  3. DOSTINEX [Concomitant]
     Dosage: 0.5 MG 1/2 CO 2/ WEEK
     Dates: start: 20080701
  4. ASAPHEN [Concomitant]
     Dosage: 80 MG 2 CO BID
  5. SYNTHROID [Concomitant]
     Dosage: 0.1 MG DIE
  6. CORTEF [Concomitant]
     Dosage: 10 MG 1 TAB 1/2 AM DIE
  7. ANDRIOL [Concomitant]
     Dosage: 40 MG, 2 DF, BID
  8. METOPROLOL TARTRATE [Concomitant]
     Dosage: 25 MG, 1 DF, BID
  9. LIPITOR [Concomitant]
     Dosage: 20 MG, 1 DF, BID
  10. PLAVIX [Concomitant]
     Dosage: 75 MG, 1 DF, BID
  11. ALTACE [Concomitant]
     Dosage: 5 MG, 1 DF,DIE
  12. NITRO PUMP [Concomitant]

REACTIONS (2)
  - BLOOD PRESSURE DECREASED [None]
  - DIZZINESS [None]
